FAERS Safety Report 25948357 (Version 1)
Quarter: 2025Q4

REPORT INFORMATION
  Report Type: Spontaneous
  Country: CA (occurrence: CA)
  Receive Date: 20251022
  Receipt Date: 20251022
  Transmission Date: 20260118
  Serious: Yes (Hospitalization, Disabling, Other)
  Sender: SANDOZ
  Company Number: CA-SANDOZ-SDZ2025CA077210

PATIENT
  Age: 54 Year
  Sex: Male

DRUGS (9)
  1. TACROLIMUS [Suspect]
     Active Substance: TACROLIMUS
     Indication: Renal transplant
     Dosage: 13 MG, QD
     Route: 048
  2. TACROLIMUS [Suspect]
     Active Substance: TACROLIMUS
     Dosage: 4 MG, QD
     Route: 048
  3. TACROLIMUS [Suspect]
     Active Substance: TACROLIMUS
     Dosage: 6 MG, QD
     Route: 048
  4. TACROLIMUS [Suspect]
     Active Substance: TACROLIMUS
     Dosage: 6 MG, QD
     Route: 048
  5. TACROLIMUS [Suspect]
     Active Substance: TACROLIMUS
     Indication: Renal transplant
     Dosage: UNK, QD
     Route: 048
  6. AMLODIPINE\RAMIPRIL [Concomitant]
     Active Substance: AMLODIPINE\RAMIPRIL
     Indication: Blood pressure measurement
     Dosage: UNK
     Route: 065
  7. BISOPROLOL [Concomitant]
     Active Substance: BISOPROLOL
     Indication: Prophylaxis
     Dosage: UNK
     Route: 065
  8. FUROSEMIDE [Concomitant]
     Active Substance: FUROSEMIDE
     Indication: Product used for unknown indication
     Dosage: UNK
     Route: 065
  9. INSULIN NOS [Concomitant]
     Active Substance: INSULIN NOS
     Indication: Prophylaxis
     Dosage: UNK, GLOBULES
     Route: 048

REACTIONS (5)
  - Hand fracture [Not Recovered/Not Resolved]
  - Joint dislocation [Not Recovered/Not Resolved]
  - Renal graft infection [Not Recovered/Not Resolved]
  - Hemiplegia [Not Recovered/Not Resolved]
  - Speech disorder [Not Recovered/Not Resolved]
